FAERS Safety Report 15260632 (Version 2)
Quarter: 2018Q3

REPORT INFORMATION
  Report Type: Spontaneous
  Country: CM (occurrence: CM)
  Receive Date: 20180809
  Receipt Date: 20180903
  Transmission Date: 20181010
  Serious: Yes (Other)
  Sender: FDA-Public Use
  Company Number: PHHY2018CM065140

PATIENT
  Age: 40 Year
  Sex: Female

DRUGS (2)
  1. COARTEM [Suspect]
     Active Substance: ARTEMETHER\LUMEFANTRINE
     Dosage: 4 DF, QD (4 TABLETS DAILY)
     Route: 048
     Dates: start: 20180509, end: 20180509
  2. COARTEM [Suspect]
     Active Substance: ARTEMETHER\LUMEFANTRINE
     Indication: MALARIA
     Dosage: 2 DF, QD (2 TABLETS DAILY)
     Route: 048
     Dates: start: 20180508

REACTIONS (5)
  - Asthenia [Recovered/Resolved]
  - Overdose [Recovered/Resolved]
  - Gastrointestinal disorder [Recovered/Resolved]
  - Loss of consciousness [Recovered/Resolved]
  - Dizziness [Recovered/Resolved]

NARRATIVE: CASE EVENT DATE: 20180509
